FAERS Safety Report 14070996 (Version 1)
Quarter: 2017Q4

REPORT INFORMATION
  Report Type: Spontaneous
  Country: US (occurrence: US)
  Receive Date: 20171011
  Receipt Date: 20171011
  Transmission Date: 20180321
  Serious: Yes (Other)
  Sender: FDA-Public Use
  Company Number: US-ASTRAZENECA-2017SF01525

PATIENT
  Age: 69 Year
  Sex: Female
  Weight: 57.6 kg

DRUGS (11)
  1. LANSOPRAZOLE. [Concomitant]
     Active Substance: LANSOPRAZOLE
     Indication: GASTROOESOPHAGEAL REFLUX DISEASE
     Dosage: MYLAN
     Route: 065
  2. LANSOPRAZOLE. [Concomitant]
     Active Substance: LANSOPRAZOLE
     Indication: GASTROOESOPHAGEAL REFLUX DISEASE
     Dosage: OVER THE COUNTER VERSION 15 MG, TWO A DAY TO EQUAL 30 MG
     Route: 065
  3. LANSOPRAZOLE. [Concomitant]
     Active Substance: LANSOPRAZOLE
     Indication: GASTROOESOPHAGEAL REFLUX DISEASE
     Dosage: PRESCRIPTION LANSOPRAZOLE
     Route: 048
  4. MEGESTROL [Concomitant]
     Active Substance: MEGESTROL
     Dates: start: 20170518, end: 20170911
  5. TRAMADOL. [Concomitant]
     Active Substance: TRAMADOL
  6. XANAX [Concomitant]
     Active Substance: ALPRAZOLAM
  7. MEGESTROL [Concomitant]
     Active Substance: MEGESTROL
  8. ARIMIDEX [Suspect]
     Active Substance: ANASTROZOLE
     Indication: BREAST CANCER METASTATIC
     Route: 048
     Dates: start: 20170911
  9. ARIMIDEX [Suspect]
     Active Substance: ANASTROZOLE
     Indication: BREAST CANCER METASTATIC
     Dosage: TEVA, 1 MG DAILY
     Route: 065
     Dates: start: 20170712, end: 20170907
  10. LANSOPRAZOLE. [Concomitant]
     Active Substance: LANSOPRAZOLE
     Indication: GASTROOESOPHAGEAL REFLUX DISEASE
     Route: 048
  11. PREVACID [Concomitant]
     Active Substance: LANSOPRAZOLE
     Indication: GASTROOESOPHAGEAL REFLUX DISEASE
     Route: 048
     Dates: start: 1995

REACTIONS (27)
  - Disturbance in attention [Recovered/Resolved]
  - Hot flush [Unknown]
  - Malaise [Recovered/Resolved]
  - Body height decreased [Unknown]
  - Bone decalcification [Unknown]
  - Stress [Unknown]
  - Panic attack [Unknown]
  - Bone disorder [Unknown]
  - Faeces discoloured [Recovered/Resolved]
  - Depression [Unknown]
  - Spinal pain [Recovered/Resolved]
  - Anxiety [Unknown]
  - Osteoporosis [Unknown]
  - Neck pain [Not Recovered/Not Resolved]
  - Malaise [Recovered/Resolved]
  - Asthenia [Recovered/Resolved]
  - Bone pain [Unknown]
  - Drug dose omission [Recovered/Resolved]
  - Abnormal dreams [Unknown]
  - Fall [Unknown]
  - Weight increased [Unknown]
  - Abdominal pain upper [Unknown]
  - Metastases to lymph nodes [Recovered/Resolved]
  - Headache [Unknown]
  - Nausea [Recovered/Resolved]
  - Oropharyngeal discomfort [Recovered/Resolved]
  - Fracture [Unknown]

NARRATIVE: CASE EVENT DATE: 2017
